FAERS Safety Report 6019521-3 (Version None)
Quarter: 2008Q4

REPORT INFORMATION
  Report Type: 
  Country: None (occurrence: None)
  Receive Date: 20081219
  Receipt Date: 20080229
  Transmission Date: 20090506
  Serious: Yes (Other)
  Sender: FDA-Public Use
  Company Number: 168250USA

PATIENT
  Age: 35 Year
  Sex: Female

DRUGS (2)
  1. METRONIDAZOLE 250MG TAB [Suspect]
     Indication: ORAL INFECTION
     Dosage: 1000 MG (250 MG, 1 IN 6 HR), ORAL
     Route: 048
     Dates: start: 20080208, end: 20080210
  2. PHENOXYMETHYLPENICILLIN [Suspect]
     Dosage: 2000 MG (500 MG, 1 IN 6 HR), ORAL
     Route: 048
     Dates: start: 20080208, end: 20080210

REACTIONS (1)
  - CONVULSION [None]
